FAERS Safety Report 8973348 (Version 1)
Quarter: 2012Q4

REPORT INFORMATION
  Report Type: 
  Country: GB (occurrence: GB)
  Receive Date: 20121218
  Receipt Date: 20121218
  Transmission Date: 20130627
  Serious: Yes (Hospitalization, Other)
  Sender: FDA-Public Use
  Company Number: GB-PERRIGO-12GB010632

PATIENT
  Age: 55 Year
  Sex: Female

DRUGS (8)
  1. CETIRIZINE HYDROCHLORIDE 16208/0066 10 MG [Suspect]
     Indication: MIGRAINE
     Dosage: 1 DF, single
     Route: 065
  2. ABACAVIR [Suspect]
     Indication: HIV INFECTION
     Dosage: 600 mg, qd
     Route: 048
     Dates: start: 201103, end: 201205
  3. LAMIVUDINE [Suspect]
     Indication: HIV INFECTION
     Dosage: 300 mg, qd
     Route: 048
     Dates: start: 201103, end: 201205
  4. REYATAZ [Suspect]
     Indication: HIV INFECTION
     Dosage: 300 mg, UNK
     Route: 048
     Dates: start: 201103, end: 201205
  5. RITONAVIR [Suspect]
     Indication: HIV INFECTION
     Dosage: 100 mg, qd
     Route: 048
     Dates: start: 201103, end: 201205
  6. MEFENAMIC ACID [Suspect]
     Indication: MIGRAINE
     Dosage: 1 DF, single
     Route: 065
  7. AMITRIPTYLINE [Suspect]
     Indication: MIGRAINE
     Dosage: 1 DF, single
     Route: 065
  8. CAFFEINE [Suspect]
     Indication: MIGRAINE
     Dosage: 1 DF, single
     Route: 065

REACTIONS (2)
  - Lactic acidosis [Recovered/Resolved]
  - Mononeuropathy multiplex [Recovering/Resolving]
